FAERS Safety Report 7369593-9 (Version None)
Quarter: 2011Q1

REPORT INFORMATION
  Report Type: 
  Country: None (occurrence: None)
  Receive Date: 20110314
  Receipt Date: 20110302
  Transmission Date: 20110831
  Serious: Yes (Other)
  Sender: FDA-Public Use
  Company Number: UTC-005498

PATIENT
  Age: 44 Year
  Sex: Female

DRUGS (1)
  1. REMODULIN [Suspect]
     Indication: PULMONARY ARTERIAL HYPERTENSION
     Dosage: 126.72 UG/KG (0.088 UG/KG, 1 IN 1 MIN),INTRAVENOUS IDIOPATHIC PULMONARY ARTERIAL HYPERTENSION

REACTIONS (1)
  - RIGHT VENTRICULAR FAILURE [None]
